FAERS Safety Report 14488191 (Version 4)
Quarter: 2018Q3

REPORT INFORMATION
  Report Type: Spontaneous
  Country: ES (occurrence: ES)
  Receive Date: 20180205
  Receipt Date: 20180713
  Transmission Date: 20181010
  Serious: Yes (Other)
  Sender: FDA-Public Use
  Company Number: ES-MYLANLABS-2018M1006909

PATIENT
  Age: 64 Year
  Sex: Female

DRUGS (3)
  1. ZOLEDRONIC ACID [Suspect]
     Active Substance: ZOLEDRONIC ACID
     Indication: BREAST CANCER
     Dosage: 4 MG, QMO
     Route: 042
     Dates: start: 2006, end: 2008
  2. ZOLEDRONIC ACID [Suspect]
     Active Substance: ZOLEDRONIC ACID
     Indication: METASTASES TO BONE
     Dosage: UNK
  3. ZOLEDRONIC ACID [Suspect]
     Active Substance: ZOLEDRONIC ACID
     Indication: METASTASES TO BONE
     Dosage: UNK

REACTIONS (13)
  - Eating disorder [Unknown]
  - Speech disorder [Unknown]
  - Oral pain [Unknown]
  - Tooth impacted [Unknown]
  - Osteonecrosis of jaw [Recovered/Resolved]
  - Oral discomfort [Unknown]
  - Exposed bone in jaw [Unknown]
  - Oral disorder [Unknown]
  - Primary sequestrum [Unknown]
  - Oedema [Unknown]
  - Purulent discharge [Unknown]
  - Actinomycosis [Recovered/Resolved]
  - Erythema [Unknown]

NARRATIVE: CASE EVENT DATE: 20090101
